FAERS Safety Report 4943862-1 (Version None)
Quarter: 2006Q1

REPORT INFORMATION
  Report Type: 
  Country: None (occurrence: None)
  Receive Date: 20060310
  Receipt Date: 20060221
  Transmission Date: 20060701
  Serious: Yes (Hospitalization)
  Sender: FDA-Public Use
  Company Number: 6020775

PATIENT
  Sex: Male

DRUGS (1)
  1. ISDIBEN (20 MG, CAPSULE) (ISOTRETINOIN) [Suspect]
     Dosage: 40,000 MG (20 MG, 2 IN 1 D), ORAL
     Route: 048

REACTIONS (1)
  - RECTAL HAEMORRHAGE [None]
